FAERS Safety Report 8479882-2 (Version None)
Quarter: 2012Q2

REPORT INFORMATION
  Report Type: 
  Country: None (occurrence: None)
  Receive Date: 20120629
  Receipt Date: 20120621
  Transmission Date: 20120825
  Serious: Yes (Other)
  Sender: FDA-Public Use
  Company Number: BR-ASTRAZENECA-2012SE42591

PATIENT
  Age: 50 Year
  Sex: Male
  Weight: 96 kg

DRUGS (3)
  1. ATACAND [Suspect]
     Route: 048
     Dates: start: 20120606
  2. ATACAND [Suspect]
     Route: 048
     Dates: start: 20120606
  3. ATACAND [Suspect]
     Indication: HYPERTENSION
     Route: 048
     Dates: start: 20090101, end: 20120605

REACTIONS (7)
  - SOMNOLENCE [None]
  - DRUG INEFFECTIVE [None]
  - URINARY INCONTINENCE [None]
  - OFF LABEL USE [None]
  - DIABETES MELLITUS [None]
  - BLOOD PRESSURE INCREASED [None]
  - SEXUAL DYSFUNCTION [None]
